FAERS Safety Report 5660667-7 (Version None)
Quarter: 2008Q1

REPORT INFORMATION
  Report Type: 
  Country: None (occurrence: None)
  Receive Date: 20080311
  Receipt Date: 20080305
  Transmission Date: 20080703
  Serious: Yes (Hospitalization)
  Sender: FDA-Public Use
  Company Number: ES-BAYER-200814426GPV

PATIENT
  Age: 66 Year
  Sex: Female

DRUGS (1)
  1. ADIRO 300 MG/ ASA [Suspect]
     Indication: CEREBRAL INFARCTION
     Route: 048
     Dates: start: 20071001, end: 20080104

REACTIONS (2)
  - GASTRIC ULCER [None]
  - GASTROINTESTINAL HAEMORRHAGE [None]
